FAERS Safety Report 4721999-X (Version None)
Quarter: 2005Q3

REPORT INFORMATION
  Report Type: 
  Country: None (occurrence: None)
  Receive Date: 20050722
  Receipt Date: 20050713
  Transmission Date: 20060218
  Serious: Yes (Life-Threatening, Hospitalization)
  Sender: FDA-Public Use
  Company Number: JP-ABBOTT-05P-087-0305906-00

PATIENT
  Age: 85 Year
  Sex: Male
  Weight: 69.4 kg

DRUGS (9)
  1. CLARITHROMYCIN [Suspect]
     Indication: BRONCHITIS ACUTE
     Route: 048
     Dates: start: 20050610, end: 20050611
  2. CARBOCISTEINE LYSINE [Suspect]
     Indication: BRONCHITIS ACUTE
     Route: 048
     Dates: start: 20050610, end: 20050611
  3. AMLODIPINE BESYLATE [Concomitant]
     Indication: HYPERTENSION
     Route: 048
     Dates: start: 20040813, end: 20050611
  4. GLIBENCLAMIDE [Concomitant]
     Indication: DIABETES MELLITUS
     Route: 048
     Dates: start: 20040813, end: 20050610
  5. DOXAZOSIN MESYLATE [Concomitant]
     Indication: HYPERURICAEMIA
     Route: 048
     Dates: start: 20040813, end: 20050610
  6. WARFARIN POTASSIUM [Concomitant]
     Indication: DEEP VEIN THROMBOSIS
     Route: 048
     Dates: start: 20040813, end: 20050610
  7. PRAVASTATIN SODIUM [Concomitant]
     Indication: HYPERLIPIDAEMIA
     Route: 048
     Dates: start: 20040813, end: 20050611
  8. DOXAZOSIN MESYLATE [Concomitant]
     Indication: HYPERTENSION
     Route: 048
     Dates: start: 20040813, end: 20050610
  9. MEXILETINE HYDROCHLORIDE [Concomitant]
     Indication: VENTRICULAR ARRHYTHMIA
     Route: 048
     Dates: start: 20040813, end: 20050611

REACTIONS (4)
  - ABASIA [None]
  - ACUTE RESPIRATORY FAILURE [None]
  - ASTHENIA [None]
  - STRIDOR [None]
